FAERS Safety Report 9516452 (Version 1)
Quarter: 2013Q1

REPORT INFORMATION
  Report Type: Spontaneous
  Country: US (occurrence: None)
  Receive Date: 20130305
  Receipt Date: 20130305
  Transmission Date: 20140127
  Serious: Yes (Other)
  Sender: FDA-Public Use
  Company Number: 163-21880-12113442

PATIENT
  Age: 57 Year
  Sex: Male

DRUGS (8)
  1. REVLIMID (LENALIDOMIDE) (25 MILLIGRAM, CAPSULES) [Suspect]
     Indication: PLASMA CELL MYELOMA
     Dosage: 25 MG,  21 IN 28 D,  PO
     Route: 048
     Dates: start: 20121026
  2. DEXAMETHASONE (DEXAMETHASONE) (UNKNOWN) [Concomitant]
  3. ASPIRIN (ACETYLSALICYLIC ACID) (UNKNOWN) (ACETYLSALICYLIC ACID) [Concomitant]
  4. CLONAZEPAM (CLONAZEPAM) (UNKNOWN) [Concomitant]
  5. FISH OIL (FISH OIL) (UNKNOWN) [Concomitant]
  6. MULTIVITAMINS (MULTIVITAMINS) (UNKNOWN) [Concomitant]
  7. CALCIUM CARBONATE (CALCIUM CARBONATE) (UNKNOWN) [Concomitant]
  8. VITAMIN D (ERGOCALCIFEROL) (UNKNOWN) [Concomitant]

REACTIONS (3)
  - Hepatic enzyme increased [None]
  - Neuropathy peripheral [None]
  - Muscle spasms [None]
